FAERS Safety Report 24836260 (Version 2)
Quarter: 2025Q1

REPORT INFORMATION
  Report Type: Spontaneous
  Country: US (occurrence: US)
  Receive Date: 20250113
  Receipt Date: 20250121
  Transmission Date: 20250408
  Serious: Yes (Other)
  Sender: CHEPLAPHARM
  Company Number: US-ROCHE-3013032

PATIENT
  Age: 67 Year
  Sex: Female

DRUGS (31)
  1. CAPECITABINE [Suspect]
     Active Substance: CAPECITABINE
     Indication: Breast cancer female
     Route: 048
     Dates: start: 20141229
  2. CAPECITABINE [Suspect]
     Active Substance: CAPECITABINE
     Indication: Metastasis
     Route: 048
     Dates: start: 20141229
  3. HERCEPTIN [Suspect]
     Active Substance: TRASTUZUMAB
     Indication: Metastasis
     Dosage: ONCE IN A 3 WEEKS
     Route: 042
     Dates: start: 20150120
  4. HERCEPTIN [Suspect]
     Active Substance: TRASTUZUMAB
     Indication: Breast cancer female
     Dosage: ONCE IN A 3 WEEKS
     Route: 042
     Dates: start: 20150120
  5. HERCEPTIN [Suspect]
     Active Substance: TRASTUZUMAB
     Indication: Lymphoma
     Dosage: ONCE IN A 3 WEEKS
     Route: 042
     Dates: start: 20150120
  6. HERCEPTIN [Suspect]
     Active Substance: TRASTUZUMAB
     Indication: Oestrogen receptor assay positive
     Dosage: ONCE IN A 3 WEEKS
     Route: 042
     Dates: start: 20150120
  7. HERCEPTIN [Suspect]
     Active Substance: TRASTUZUMAB
     Indication: Metastasis
     Dosage: INFUSE 360MG INTRAVENOUSLY EVERY 21 DAY(S)
     Route: 042
     Dates: start: 20180516
  8. HERCEPTIN [Suspect]
     Active Substance: TRASTUZUMAB
     Indication: Breast cancer female
     Dosage: INFUSE 360MG INTRAVENOUSLY EVERY 21 DAY(S)
     Route: 042
     Dates: start: 20180516
  9. HERCEPTIN [Suspect]
     Active Substance: TRASTUZUMAB
     Indication: Lymphoma
     Dosage: INFUSE 360MG INTRAVENOUSLY EVERY 21 DAY(S)
     Route: 042
     Dates: start: 20180516
  10. HERCEPTIN [Suspect]
     Active Substance: TRASTUZUMAB
     Indication: Oestrogen receptor assay positive
     Dosage: INFUSE 360MG INTRAVENOUSLY EVERY 21 DAY(S)
     Route: 042
     Dates: start: 20180516
  11. PERJETA [Suspect]
     Active Substance: PERTUZUMAB
     Indication: Breast cancer female
     Dosage: 150 MG, ONCE IN A 21 DAYS
     Route: 042
     Dates: start: 201812
  12. PERJETA [Suspect]
     Active Substance: PERTUZUMAB
     Indication: Metastasis
     Dosage: 150 MG, ONCE IN A 21 DAYS
     Route: 042
     Dates: start: 201812
  13. PERJETA [Suspect]
     Active Substance: PERTUZUMAB
     Indication: Breast cancer female
     Dosage: 420 MG, ONCE IN A 21 DAYS
     Route: 042
  14. PERJETA [Suspect]
     Active Substance: PERTUZUMAB
     Indication: Metastasis
     Dosage: 420 MG, ONCE IN A 21 DAYS
     Route: 042
  15. KADCYLA [Suspect]
     Active Substance: ADO-TRASTUZUMAB EMTANSINE
     Indication: Breast cancer female
     Dosage: 200MG ONCE IN A 21 DAYS
     Route: 042
     Dates: start: 20220315
  16. KADCYLA [Suspect]
     Active Substance: ADO-TRASTUZUMAB EMTANSINE
     Indication: Lymphoma
     Dosage: 200MG ONCE IN A 21 DAYS
     Route: 042
     Dates: start: 20220315
  17. KADCYLA [Suspect]
     Active Substance: ADO-TRASTUZUMAB EMTANSINE
     Indication: Metastasis
     Dosage: 200MG ONCE IN A 21 DAYS
     Route: 042
     Dates: start: 20220315
  18. VITAMIN D3 [Concomitant]
     Active Substance: CHOLECALCIFEROL
  19. SUCRALFATE [Concomitant]
     Active Substance: SUCRALFATE
  20. LISINOPRIL [Concomitant]
     Active Substance: LISINOPRIL
  21. HYDROXYZINE [Concomitant]
     Active Substance: HYDROXYZINE HYDROCHLORIDE
  22. ACETAMINOPHEN\HYDROCODONE [Concomitant]
     Active Substance: ACETAMINOPHEN\HYDROCODONE
  23. GABAPENTIN [Concomitant]
     Active Substance: GABAPENTIN
  24. FISH OIL [Concomitant]
     Active Substance: FISH OIL
  25. DECADRON [Concomitant]
     Active Substance: DEXAMETHASONE
  26. VITAMIN B12 [Concomitant]
     Active Substance: CYANOCOBALAMIN
  27. AMLODIPINE [Concomitant]
     Active Substance: AMLODIPINE BESYLATE
  28. CYTOXAN [Concomitant]
     Active Substance: CYCLOPHOSPHAMIDE
  29. GEMZAR [Concomitant]
     Active Substance: GEMCITABINE HYDROCHLORIDE
  30. FASLODEX [Concomitant]
     Active Substance: FULVESTRANT
  31. PACLITAXEL [Concomitant]
     Active Substance: PACLITAXEL

REACTIONS (15)
  - Pruritus [Unknown]
  - Cellulitis [Recovering/Resolving]
  - Rash [Unknown]
  - Peripheral swelling [Unknown]
  - Nodule [Unknown]
  - Dysphagia [Unknown]
  - Choking sensation [Unknown]
  - Abdominal discomfort [Unknown]
  - Throat tightness [Unknown]
  - Pruritus [Unknown]
  - Anxiety [Unknown]
  - Arthralgia [Unknown]
  - Tumour pain [Unknown]
  - Tonsillitis [Unknown]
  - Disease progression [Unknown]

NARRATIVE: CASE EVENT DATE: 20180607
